FAERS Safety Report 9019524 (Version 6)
Quarter: 2014Q1

REPORT INFORMATION
  Report Type: Spontaneous
  Country: TR (occurrence: TR)
  Receive Date: 20130118
  Receipt Date: 20140312
  Transmission Date: 20141002
  Serious: No
  Sender: FDA-Public Use
  Company Number: TR-SANOFI-AVENTIS-2013SA003269

PATIENT
  Age: 36 Year
  Sex: Female
  Weight: 55 kg

DRUGS (3)
  1. ARAVA [Suspect]
     Indication: RHEUMATOID ARTHRITIS
     Route: 048
     Dates: start: 20120103, end: 20130102
  2. DELTACORTRIL [Suspect]
     Indication: RHEUMATOID ARTHRITIS
     Dosage: STRENGTH: 5 MG?START DATE- 3 YEARS AGO
     Route: 048
  3. SALAZOPYRIN [Suspect]
     Indication: RHEUMATOID ARTHRITIS
     Dosage: STRENGTH- 5000 MG
     Route: 048
     Dates: start: 20120103

REACTIONS (1)
  - Exposure during pregnancy [Unknown]
